FAERS Safety Report 6408285-7 (Version None)
Quarter: 2009Q4

REPORT INFORMATION
  Report Type: 
  Country: None (occurrence: None)
  Receive Date: 20091016
  Receipt Date: 20091001
  Transmission Date: 20100525
  Serious: Yes (Hospitalization)
  Sender: FDA-Public Use
  Company Number: DSJ-2009-12861

PATIENT
  Age: 78 Year
  Sex: Female

DRUGS (5)
  1. BENICAR HCT [Suspect]
     Indication: HYPERTENSION
     Dosage: 20/12.5MG (1 IN 1 D), PER ORAL
     Route: 048
     Dates: start: 20080701, end: 20090909
  2. ACETYLSALICYLIC ACID SRT [Concomitant]
  3. SOTALOL (SOTALOL) (SOTALOL) [Concomitant]
  4. CALCIUM CARBONATE (CALCIUM CARBONATE) (CALCIUM CARBONATE) [Concomitant]
  5. RISEDRONATE SODIUM (RISEDRONATE SODIUM) (RISEDRONATE SODIUM) [Concomitant]

REACTIONS (4)
  - CEREBROVASCULAR ACCIDENT [None]
  - HYPOTENSION [None]
  - MUSCULOSKELETAL STIFFNESS [None]
  - SYSTOLIC HYPERTENSION [None]
